FAERS Safety Report 15870457 (Version 1)
Quarter: 2019Q1

REPORT INFORMATION
  Report Type: Spontaneous
  Country: US (occurrence: US)
  Receive Date: 20190125
  Receipt Date: 20190125
  Transmission Date: 20190417
  Serious: No
  Sender: FDA-Public Use
  Company Number: US-EMMAUS MEDICAL, INC.-EMM201812-000932

PATIENT
  Sex: Male

DRUGS (1)
  1. ENDARI [Suspect]
     Active Substance: GLUTAMINE
     Indication: SICKLE CELL ANAEMIA
     Route: 048

REACTIONS (1)
  - Sickle cell anaemia [Unknown]
